FAERS Safety Report 17249833 (Version 4)
Quarter: 2021Q4

REPORT INFORMATION
  Report Type: Report from Study
  Country: US (occurrence: US)
  Receive Date: 20200109
  Receipt Date: 20211108
  Transmission Date: 20220303
  Serious: Yes (Other)
  Sender: FDA-Public Use
  Company Number: US-ROCHE-2515978

PATIENT
  Age: 71 Year

DRUGS (6)
  1. ATEZOLIZUMAB [Suspect]
     Active Substance: ATEZOLIZUMAB
     Indication: Colorectal cancer metastatic
     Route: 042
     Dates: start: 20180501
  2. ATEZOLIZUMAB [Suspect]
     Active Substance: ATEZOLIZUMAB
     Dosage: DATE OF LAST DOSE: 16/AUG/2020
     Route: 042
     Dates: start: 20180215
  3. CAPECITABINE [Suspect]
     Active Substance: CAPECITABINE
     Indication: Colorectal cancer metastatic
     Dosage: DOSE : 850 OR 1000 MG/M^2
     Route: 048
     Dates: start: 20180501
  4. CAPECITABINE [Suspect]
     Active Substance: CAPECITABINE
     Dosage: DATE OF LAST DOSE: 16/AUG/2020?DOSE: 850 OR 1000 MG/M^2
     Route: 048
     Dates: start: 20180215, end: 20180829
  5. BEVACIZUMAB [Suspect]
     Active Substance: BEVACIZUMAB
     Indication: Colorectal cancer metastatic
     Route: 042
     Dates: start: 20180501
  6. BEVACIZUMAB [Suspect]
     Active Substance: BEVACIZUMAB
     Dosage: DATE OF LAST DOSE: 16/AUG/2020
     Route: 042
     Dates: start: 20180215, end: 20180816

REACTIONS (3)
  - Blood alkaline phosphatase increased [Unknown]
  - Blood bilirubin increased [Unknown]
  - Aspartate aminotransferase increased [Unknown]

NARRATIVE: CASE EVENT DATE: 20181010
